FAERS Safety Report 6328705-6 (Version None)
Quarter: 2009Q3

REPORT INFORMATION
  Report Type: 
  Country: None (occurrence: None)
  Receive Date: 20090826
  Receipt Date: 20090821
  Transmission Date: 20100115
  Serious: Yes (Life-Threatening, Hospitalization, Disabling, Other)
  Sender: FDA-Public Use
  Company Number: PHHY2009DE35458

PATIENT
  Age: 67 Year
  Sex: Female

DRUGS (10)
  1. CARBAMAZEPINE [Suspect]
     Indication: TOOTHACHE
     Dosage: 2-0-2 DOSAGE FORMS PER DAY
     Dates: start: 20030101, end: 20090101
  2. CARBAMAZEPINE [Suspect]
     Dosage: UNK
  3. CARBAMAZEPINE [Suspect]
     Dosage: UNK
  4. DIOVAN [Suspect]
     Indication: HYPERTENSION
     Dosage: 0.5-0-0 DF
  5. RAMIPRIL [Concomitant]
     Indication: HYPERTENSION
     Dosage: 1-0-0 DF
  6. METOPROLOL SUCCINATE [Concomitant]
     Indication: HYPERTENSION
     Dosage: 1-0-1 DF
  7. DOXAZOSIN [Concomitant]
     Indication: HYPERTENSION
     Dosage: 1.5-0-0 DF
  8. FUROSEMIDE [Concomitant]
     Indication: HYPERTENSION
     Dosage: 0.5-0-0 DF
  9. CIPRAMIL [Concomitant]
     Dosage: 1 DF, QD
  10. ZOLPIDEM [Concomitant]
     Dosage: 0-0-1

REACTIONS (24)
  - AGITATION [None]
  - APATHY [None]
  - BLOOD PRESSURE INCREASED [None]
  - BLOOD SODIUM DECREASED [None]
  - DEPRESSION [None]
  - DIPLOPIA [None]
  - DISABILITY [None]
  - DIZZINESS [None]
  - DRY MOUTH [None]
  - ERYTHEMA [None]
  - FATIGUE [None]
  - GAIT DISTURBANCE [None]
  - GASTROINTESTINAL MOTILITY DISORDER [None]
  - HYPOAESTHESIA [None]
  - INTENTIONAL SELF-INJURY [None]
  - LIVER INJURY [None]
  - MENTAL DISORDER [None]
  - OEDEMA PERIPHERAL [None]
  - PAIN [None]
  - QUALITY OF LIFE DECREASED [None]
  - SUICIDE ATTEMPT [None]
  - TACHYCARDIA [None]
  - TOOTHACHE [None]
  - VISUAL ACUITY REDUCED [None]
